FAERS Safety Report 20876927 (Version 3)
Quarter: 2022Q3

REPORT INFORMATION
  Report Type: Spontaneous
  Country: US (occurrence: US)
  Receive Date: 20220526
  Receipt Date: 20220901
  Transmission Date: 20221027
  Serious: Yes (Other)
  Sender: FDA-Public Use
  Company Number: US-JNJFOC-20220538262

PATIENT
  Age: 74 Year
  Sex: Female

DRUGS (22)
  1. STELARA [Suspect]
     Active Substance: USTEKINUMAB
     Indication: Crohn^s disease
     Route: 058
     Dates: start: 20201103
  2. ATORVASTATIN [Concomitant]
     Active Substance: ATORVASTATIN
     Dosage: ONE TAB DAILY (90 EVERY 3 MONTHS)
  3. AZATHIOPRINE [Concomitant]
     Active Substance: AZATHIOPRINE
     Dosage: 3 TABS DAILY (270 EVERY 3 MONTHS}
  4. CHOLESTYRAMINE [Concomitant]
     Active Substance: CHOLESTYRAMINE
     Dosage: 2 TSPS DAILY
  5. FOLTX [Concomitant]
     Active Substance: CYANOCOBALAMIN CO-57\FOLIC ACID\PYRIDOXINE HYDROCHLORIDE
     Dosage: 1 TAB DAI.LY {30 EVERY MONTH)
  6. ACETAMINOPHEN\HYDROCODONE [Concomitant]
     Active Substance: ACETAMINOPHEN\HYDROCODONE
     Dosage: 5-325 MG 4 DAILY (120 EVERY MONTH)
  7. LEVOTHYROXINE SODIUM [Concomitant]
     Active Substance: LEVOTHYROXINE SODIUM
     Dosage: ALTERNATE 150 MCG ANO 137 MCG ONE DAILY (30 EVERY MONTH)
  8. LORAZEPAM [Concomitant]
     Active Substance: LORAZEPAM
     Dosage: 3 TABS DAILY (270 EVERY 3 MONTHS)
  9. LOSARTAN POTASSIUM [Concomitant]
     Active Substance: LOSARTAN POTASSIUM
     Dosage: ONE DAILY (90 EVERY 3 MONTHS)
  10. HYDROCHLOROTHIAZIDE [Concomitant]
     Active Substance: HYDROCHLOROTHIAZIDE
     Dosage: ONE/ALTERNATE EVERY OTHER DAY
  11. MUPIROCIN [Concomitant]
     Active Substance: MUPIROCIN
     Dosage: 2% OINTMENT 22GM TUBE (.AS NEEDED)
  12. NYSTATIN [Concomitant]
     Active Substance: NYSTATIN
     Dosage: 1OOOOO UNIT/GM 60GM BOTTLE (1EVRY 3 MONTHS)
  13. OMEPRAZOLE [Concomitant]
     Active Substance: OMEPRAZOLE
  14. POTASSIUM CHLORIDE [Concomitant]
     Active Substance: POTASSIUM CHLORIDE
     Dosage: 10 MEQ 1 DAILY (90 EVERY 3 MONTHS)
  15. XARELTO [Concomitant]
     Active Substance: RIVAROXABAN
     Dosage: 30 EVERY MONTH
     Dates: start: 20190315
  16. PROPRANOLOL HYDROCHLORIDE [Concomitant]
     Active Substance: PROPRANOLOL HYDROCHLORIDE
     Dosage: (180 EVERY3MONTHS)
  17. GABAPENTIN [Concomitant]
     Active Substance: GABAPENTIN
     Dosage: TAKEN FOR LEG PAIN IF NEEDED. TAB EVERY NIGHT X 1 WEEK, THEN TAKE 1TAB EVER Y NIGHT IF-PAIN PERSISTS
  18. ERYTHROMYCIN [Concomitant]
     Active Substance: ERYTHROMYCIN
     Dosage: MIC OINTMENT USP 05% (STERR) APPLY BOTH EYES AT BEDTIME
  19. VITAMIN D3 [Concomitant]
     Active Substance: CHOLECALCIFEROL
     Dosage: 800/ILL
  20. CALCIUM [Concomitant]
     Active Substance: CALCIUM
  21. MIRALAX [Concomitant]
     Active Substance: POLYETHYLENE GLYCOL 3350
     Dosage: AS NEEDED
  22. IRON [Concomitant]
     Active Substance: IRON
     Dosage: 1 A DAY

REACTIONS (1)
  - Skin cancer [Recovering/Resolving]

NARRATIVE: CASE EVENT DATE: 20220101
